FAERS Safety Report 21086923 (Version 4)
Quarter: 2023Q2

REPORT INFORMATION
  Report Type: Other
  Country: CA (occurrence: None)
  Receive Date: 20220715
  Receipt Date: 20230410
  Transmission Date: 20230721
  Serious: No
  Sender: FDA-Public Use
  Company Number: CA-ROCHE-3140626

PATIENT
  Age: 38 Year
  Sex: Female

DRUGS (2)
  1. OCREVUS [Suspect]
     Active Substance: OCRELIZUMAB
     Indication: Relapsing-remitting multiple sclerosis
     Dosage: 300 MG AT DAY 0 AND 14, THEN 600 MG
     Route: 042
     Dates: start: 20180427
  2. MARVELON [Concomitant]
     Active Substance: DESOGESTREL\ETHINYL ESTRADIOL
     Indication: Contraception

REACTIONS (4)
  - COVID-19 [Recovered/Resolved]
  - Infusion related reaction [Recovered/Resolved]
  - Eye infection [Unknown]
  - Infusion related reaction [Recovered/Resolved]

NARRATIVE: CASE EVENT DATE: 20220531
